FAERS Safety Report 7336199 (Version 2)
Quarter: 2014Q2

REPORT INFORMATION
  Report Type: Report from Study
  Country: US (occurrence: US)
  Receive Date: 20100330
  Receipt Date: 20140519
  Transmission Date: 20141212
  Serious: Yes (Hospitalization, Other)
  Sender: FDA-Public Use
  Company Number: US-SANOFI-AVENTIS-2010SA016618

PATIENT
  Age: 70 Year
  Sex: Female

DRUGS (7)
  1. MULTAQ [Suspect]
     Indication: ATRIAL FIBRILLATION
     Dosage: ONE HALF TABLET TWICE A DAY
     Route: 048
     Dates: start: 200911, end: 201003
  2. MULTAQ [Suspect]
     Indication: ATRIAL FIBRILLATION
     Route: 048
     Dates: start: 20100308
  3. COUMADIN [Suspect]
     Route: 048
     Dates: start: 2007, end: 201003
  4. COUMADIN [Suspect]
     Route: 048
     Dates: start: 201003
  5. CARDIZEM [Concomitant]
     Indication: ATRIAL FIBRILLATION
     Route: 048
     Dates: start: 2007
  6. SYNTHROID [Concomitant]
     Route: 048
     Dates: start: 2007
  7. NEXIUM [Concomitant]

REACTIONS (8)
  - Atrial fibrillation [Unknown]
  - Incorrect dose administered [Unknown]
  - International normalised ratio increased [Unknown]
  - Haemorrhage [Unknown]
  - Diarrhoea [Unknown]
  - Abdominal discomfort [Unknown]
  - Cough [Unknown]
  - Blood pressure increased [Unknown]
